FAERS Safety Report 12845497 (Version 1)
Quarter: 2016Q4

REPORT INFORMATION
  Report Type: Spontaneous
  Country: US (occurrence: US)
  Receive Date: 20161013
  Receipt Date: 20161013
  Transmission Date: 20170207
  Serious: No
  Sender: FDA-Public Use
  Company Number: US-JAZZ-2016-US-013758

PATIENT
  Sex: Female

DRUGS (24)
  1. LOSARTAN POTASSIUM. [Concomitant]
     Active Substance: LOSARTAN POTASSIUM
  2. PENICILLIN [Concomitant]
     Active Substance: PENICILLIN
  3. HYDROXYZINE [Concomitant]
     Active Substance: HYDROXYZINE\HYDROXYZINE HYDROCHLORIDE
  4. IMIPRAMINE HCL [Concomitant]
     Active Substance: IMIPRAMINE HYDROCHLORIDE
  5. XYREM [Suspect]
     Active Substance: SODIUM OXYBATE
     Indication: NARCOLEPSY
     Dosage: 2.25 G, BID
     Route: 048
     Dates: start: 201101, end: 201101
  6. IBUPROFEN. [Concomitant]
     Active Substance: IBUPROFEN
  7. XYREM [Suspect]
     Active Substance: SODIUM OXYBATE
     Dosage: 3.5 G, BID
     Route: 048
     Dates: start: 201209
  8. LEVOTHYROXINE. [Concomitant]
     Active Substance: LEVOTHYROXINE
  9. ATROVENT HFA [Concomitant]
     Active Substance: IPRATROPIUM BROMIDE
  10. PREMARIN [Concomitant]
     Active Substance: ESTROGENS, CONJUGATED
  11. WELLBUTRIN [Concomitant]
     Active Substance: BUPROPION HYDROCHLORIDE
  12. NUVIGIL [Concomitant]
     Active Substance: ARMODAFINIL
  13. ADDERALL [Concomitant]
     Active Substance: AMPHETAMINE ASPARTATE\AMPHETAMINE SULFATE\DEXTROAMPHETAMINE SACCHARATE\DEXTROAMPHETAMINE SULFATE
  14. BUSPIRONE HCL [Concomitant]
     Active Substance: BUSPIRONE HYDROCHLORIDE
  15. VALACYCLOVIR HCL [Concomitant]
     Active Substance: VALACYCLOVIR HYDROCHLORIDE
  16. XYREM [Suspect]
     Active Substance: SODIUM OXYBATE
     Indication: CATAPLEXY
     Dosage: DOSE ADJUSTMENTS
     Route: 048
     Dates: start: 201101, end: 201209
  17. FLUCONAZOLE. [Concomitant]
     Active Substance: FLUCONAZOLE
  18. MULTIVITAMINS [Concomitant]
     Active Substance: VITAMINS
  19. VITRON-C [Concomitant]
  20. DIAZEPAM. [Concomitant]
     Active Substance: DIAZEPAM
  21. MIRAPEX [Concomitant]
     Active Substance: PRAMIPEXOLE DIHYDROCHLORIDE
  22. PRAMIPEXOLE. [Concomitant]
     Active Substance: PRAMIPEXOLE
  23. CLOBETASOL [Concomitant]
     Active Substance: CLOBETASOL
  24. PROAIR HFA [Concomitant]
     Active Substance: ALBUTEROL SULFATE

REACTIONS (1)
  - Arthropod sting [Unknown]
